FAERS Safety Report 5918690-0 (Version None)
Quarter: 2008Q4

REPORT INFORMATION
  Report Type: 
  Country: None (occurrence: None)
  Receive Date: 20081015
  Receipt Date: 20080609
  Transmission Date: 20090506
  Serious: No
  Sender: FDA-Public Use
  Company Number: US-ASTRAZENECA-2008UW11546

PATIENT
  Age: 66 Year
  Sex: Female

DRUGS (5)
  1. SYMBICORT [Suspect]
     Indication: BRONCHITIS
     Dosage: 2 PUFFS BID
     Route: 055
     Dates: start: 20080501
  2. SYMBICORT [Suspect]
     Indication: HYPERSENSITIVITY
     Dosage: 2 PUFFS BID
     Route: 055
     Dates: start: 20080501
  3. LEVOTHYROXINE SODIUM [Concomitant]
  4. OMEPRAZOLE [Concomitant]
  5. GABAPENTIN [Concomitant]

REACTIONS (2)
  - HYPOAESTHESIA [None]
  - VISUAL IMPAIRMENT [None]
